FAERS Safety Report 21034031 (Version 1)
Quarter: 2022Q3

REPORT INFORMATION
  Report Type: Report from Study
  Country: US (occurrence: US)
  Receive Date: 20220701
  Receipt Date: 20220701
  Transmission Date: 20221027
  Serious: Yes (Life-Threatening, Hospitalization, Other)
  Sender: FDA-Public Use
  Company Number: US-BRISTOL-MYERS SQUIBB COMPANY-2022-065774

PATIENT
  Age: 46 Year
  Sex: Female
  Weight: 56.5 kg

DRUGS (9)
  1. JADENU [Concomitant]
     Active Substance: DEFERASIROX
     Indication: Product used for unknown indication
     Route: 065
     Dates: start: 20150922
  2. Zaditor Opthalmic [Concomitant]
     Indication: Seasonal allergy
     Route: 065
     Dates: start: 20130508
  3. FISH OIL [Concomitant]
     Active Substance: FISH OIL
     Indication: Product used for unknown indication
     Route: 065
     Dates: start: 20090707
  4. HYDROXYZINE HYDROCHLORIDE [Concomitant]
     Active Substance: HYDROXYZINE HYDROCHLORIDE
     Indication: Product used for unknown indication
     Dosage: FREQUENCY: PRN
     Route: 065
  5. FOLIC ACID [Concomitant]
     Active Substance: FOLIC ACID
     Indication: Prophylaxis
     Route: 065
     Dates: start: 20080617
  6. ETHINYL ESTRADIOL\ETONOGESTREL [Concomitant]
     Active Substance: ETHINYL ESTRADIOL\ETONOGESTREL
     Indication: Contraception
     Dosage: 1 DOSAGE FORM= 0.12/0.015 MG
     Route: 067
  7. CENTRUM SILVER ULTRA WOMEN [Concomitant]
     Indication: Product used for unknown indication
     Route: 065
     Dates: start: 20110316
  8. CALCIUM\VITAMIN D [Concomitant]
     Active Substance: CALCIUM\VITAMIN D
     Indication: Product used for unknown indication
     Route: 065
     Dates: start: 20080717
  9. ACETAMINOPHEN [Concomitant]
     Active Substance: ACETAMINOPHEN
     Indication: Product used for unknown indication
     Dosage: 325-600 MG PRN
     Route: 048
     Dates: start: 20110929

REACTIONS (3)
  - Deep vein thrombosis [Not Recovered/Not Resolved]
  - Pulmonary embolism [Not Recovered/Not Resolved]
  - Electrocardiogram ST-T segment abnormal [Not Recovered/Not Resolved]

NARRATIVE: CASE EVENT DATE: 20220517
